FAERS Safety Report 8852697 (Version 1)
Quarter: 2012Q4

REPORT INFORMATION
  Report Type: 
  Country: US (occurrence: US)
  Receive Date: 20121022
  Receipt Date: 20121022
  Transmission Date: 20130627
  Serious: No
  Sender: FDA-Public Use
  Company Number: US-VERTEX PHARMACEUTICAL INC.-2012-022900

PATIENT
  Age: 54 Year
  Sex: Female

DRUGS (6)
  1. VX-950 [Suspect]
     Indication: HEPATITIS C
     Dosage: 750 mg, tid
     Route: 048
  2. PEGASYS [Concomitant]
     Indication: HEPATITIS C
     Dosage: 180 UNK, UNK
  3. RIBAVIRIN [Concomitant]
     Indication: HEPATITIS C
     Dosage: 200 mg, UNK
  4. FLUOXETINE [Concomitant]
     Dosage: 10 mg, UNK
  5. LORTAB                             /00607101/ [Concomitant]
     Dosage: 7.5 UNK, UNK
  6. HYDROCHLOROTHIAZIDE W/TRIAMTERENE [Concomitant]
     Dosage: 25- 50 mg

REACTIONS (2)
  - White blood cell count decreased [Unknown]
  - Back pain [Unknown]
